FAERS Safety Report 4464266-4 (Version None)
Quarter: 2004Q4

REPORT INFORMATION
  Report Type: 
  Country: None (occurrence: None)
  Receive Date: 20041001
  Receipt Date: 20040820
  Transmission Date: 20050328
  Serious: Yes (Hospitalization)
  Sender: FDA-Public Use
  Company Number: PHHO2004JP11849

PATIENT
  Age: 88 Year
  Sex: Female

DRUGS (7)
  1. DIOVAN [Suspect]
     Dosage: 80MG DAILY DOSE
     Route: 048
     Dates: start: 20030624, end: 20031125
  2. DIOVAN [Suspect]
     Dosage: 40MG DAILY DOSE
     Route: 048
     Dates: start: 20031126, end: 20040209
  3. KAMAG G [Suspect]
     Indication: CONSTIPATION
     Route: 048
     Dates: start: 20030630
  4. BASEN [Suspect]
     Indication: DIABETES MELLITUS
     Route: 048
     Dates: start: 20030909
  5. PANTOSIN [Suspect]
     Indication: CONSTIPATION
     Route: 048
     Dates: start: 20030624
  6. PL GRAN. [Suspect]
     Indication: NASOPHARYNGITIS
     Route: 048
     Dates: start: 20040126, end: 20040128
  7. PL GRAN. [Suspect]
     Route: 048
     Dates: start: 20040202, end: 20040206

REACTIONS (2)
  - NEUROGENIC BLADDER [None]
  - TIC [None]
